FAERS Safety Report 20822550 (Version 2)
Quarter: 2022Q2

REPORT INFORMATION
  Report Type: Spontaneous
  Country: US (occurrence: US)
  Receive Date: 20220512
  Receipt Date: 20220609
  Transmission Date: 20220721
  Serious: No
  Sender: FDA-Public Use
  Company Number: US-BRISTOL-MYERS SQUIBB COMPANY-2022-026762

PATIENT
  Age: 77 Year
  Sex: Male

DRUGS (2)
  1. REVLIMID [Suspect]
     Active Substance: LENALIDOMIDE
     Indication: Plasma cell myeloma
     Dosage: TAKE 1 CAPSULE BY MOUTH EVERY DAY ON DAYS 1-21 OUT OF A 28 DAY CYCLE FOR MULTIPLE MYELOMA
     Route: 048
  2. REVLIMID [Suspect]
     Active Substance: LENALIDOMIDE
     Dosage: DOSE AND FREQUENCY: ?TAKE 1 CAPSULE BY MOUTH DAILY ON DAYS 1-21 OUT OF A 28 DAY CYCLE
     Route: 048

REACTIONS (4)
  - Fatigue [Unknown]
  - Muscle spasms [Unknown]
  - Abdominal discomfort [Unknown]
  - Swelling [Unknown]
